FAERS Safety Report 7879845-1 (Version None)
Quarter: 2011Q4

REPORT INFORMATION
  Report Type: 
  Country: None (occurrence: None)
  Receive Date: 20111101
  Receipt Date: 20111021
  Transmission Date: 20120403
  Serious: Yes (Other)
  Sender: FDA-Public Use
  Company Number: IT-ROCHE-1006367

PATIENT
  Sex: Male

DRUGS (2)
  1. XOLAIR [Suspect]
     Indication: ASTHMA
     Dosage: INHALATION
     Route: 050
     Dates: start: 20100203, end: 20110714
  2. FLUTICASONE PROPIONATE/SALMETEROL [Suspect]
     Indication: ASTHMA
     Dates: start: 20110302, end: 20110714

REACTIONS (1)
  - ACUTE MYOCARDIAL INFARCTION [None]
